FAERS Safety Report 9729458 (Version 2)
Quarter: 2013Q4

REPORT INFORMATION
  Report Type: Spontaneous
  Country: US (occurrence: US)
  Receive Date: 20131204
  Receipt Date: 20131204
  Transmission Date: 20140711
  Serious: No
  Sender: FDA-Public Use
  Company Number: US-GILEAD-2009-0021196

PATIENT
  Sex: Female

DRUGS (6)
  1. LETAIRIS [Suspect]
     Indication: PULMONARY ARTERIAL HYPERTENSION
     Dates: start: 20090323
  2. CIALIS [Concomitant]
  3. DIGOXIN [Concomitant]
  4. ENALAPRIL [Concomitant]
  5. LASIX [Concomitant]
  6. KCL [Concomitant]

REACTIONS (3)
  - Vision blurred [Unknown]
  - Dizziness [Unknown]
  - Tinnitus [Unknown]
